FAERS Safety Report 5780719-0 (Version None)
Quarter: 2008Q2

REPORT INFORMATION
  Report Type: 
  Country: None (occurrence: None)
  Receive Date: 20080620
  Receipt Date: 20080524
  Transmission Date: 20081010
  Serious: No
  Sender: FDA-Public Use
  Company Number: US-BAYER-200824307NA

PATIENT
  Age: 15 Year
  Sex: Female
  Weight: 71 kg

DRUGS (2)
  1. YAZ [Suspect]
     Indication: CONTRACEPTION
     Route: 048
     Dates: start: 20080510
  2. TETRA TRIM-SLUSA-BS [Concomitant]
     Indication: URINARY TRACT INFECTION
     Dates: start: 20080501, end: 20080522

REACTIONS (2)
  - NO ADVERSE EVENT [None]
  - STOMACH DISCOMFORT [None]
